FAERS Safety Report 18339502 (Version 1)
Quarter: 2020Q3

REPORT INFORMATION
  Report Type: Spontaneous
  Country: US (occurrence: US)
  Receive Date: 20200928
  Receipt Date: 20200928
  Transmission Date: 20201103
  Serious: Yes (Other)
  Sender: FDA-Public Use
  Company Number: None

PATIENT
  Age: 2 Decade
  Sex: Female

DRUGS (2)
  1. DARUNAVIR?COBICSTAT [Suspect]
     Active Substance: COBICISTAT\DARUNAVIR ETHANOLATE
     Indication: COVID-19
     Dates: start: 2020
  2. ARBIDOL [Suspect]
     Active Substance: UMIFENOVIR
     Indication: COVID-19
     Dates: start: 2020

REACTIONS (3)
  - Product use in unapproved indication [None]
  - Anosmia [None]
  - Product use issue [None]
